FAERS Safety Report 25859341 (Version 2)
Quarter: 2025Q4

REPORT INFORMATION
  Report Type: Spontaneous
  Country: JP (occurrence: JP)
  Receive Date: 20250929
  Receipt Date: 20251029
  Transmission Date: 20260119
  Serious: Yes (Hospitalization)
  Sender: BAYER HEALTHCARE PHARMACEUTICALS INC.
  Company Number: JP-BAYER-2025A128616

PATIENT
  Age: 40 Year
  Sex: Female
  Weight: 75 kg

DRUGS (1)
  1. GADOBUTROL [Suspect]
     Active Substance: GADOBUTROL
     Indication: Magnetic resonance imaging
     Dosage: 7.5 ML, ONCE
     Route: 042
     Dates: start: 20250918, end: 20250918

REACTIONS (9)
  - Erythema [Recovered/Resolved]
  - Pruritus [Recovered/Resolved]
  - Hot flush [Recovered/Resolved]
  - Face oedema [Recovered/Resolved]
  - Feeling cold [Recovered/Resolved]
  - Stertor [Recovered/Resolved]
  - Respiratory arrest [Recovered/Resolved]
  - Oxygen saturation immeasurable [Recovered/Resolved]
  - Blood pressure systolic decreased [Recovered/Resolved]

NARRATIVE: CASE EVENT DATE: 20250918
